FAERS Safety Report 6377720-5 (Version None)
Quarter: 2009Q3

REPORT INFORMATION
  Report Type: 
  Country: None (occurrence: None)
  Receive Date: 20090925
  Receipt Date: 20090915
  Transmission Date: 20100115
  Serious: Yes (Other)
  Sender: FDA-Public Use
  Company Number: JP-PFIZER INC-2009273183

PATIENT

DRUGS (7)
  1. ZOLOFT [Suspect]
     Indication: DEPRESSION
     Dosage: UNK
     Route: 048
     Dates: start: 20090702
  2. ALPRAZOLAM [Concomitant]
     Dosage: UNK
     Route: 048
  3. AMARYL [Concomitant]
     Dosage: UNK
     Route: 048
  4. ALLOZYM [Concomitant]
     Dosage: UNK
     Route: 048
  5. CONIEL [Concomitant]
     Dosage: UNK
     Route: 048
     Dates: start: 20090101
  6. LOSARTAN POTASSIUM AND HYDROCHLOROTHIAZIDE [Concomitant]
     Dosage: UNK
     Route: 048
     Dates: start: 20090701
  7. MELBIN [Concomitant]
     Dosage: UNK
     Route: 048
     Dates: start: 20090801

REACTIONS (12)
  - ACTIVITIES OF DAILY LIVING IMPAIRED [None]
  - ASTHENIA [None]
  - BLOOD GLUCOSE INCREASED [None]
  - BLOOD PRESSURE INCREASED [None]
  - COLD SWEAT [None]
  - DEPRESSION [None]
  - DIZZINESS [None]
  - DYSARTHRIA [None]
  - DYSGRAPHIA [None]
  - HOT FLUSH [None]
  - LOSS OF CONSCIOUSNESS [None]
  - SOMNOLENCE [None]
